FAERS Safety Report 8495569-4 (Version None)
Quarter: 2012Q3

REPORT INFORMATION
  Report Type: 
  Country: None (occurrence: None)
  Receive Date: 20120709
  Receipt Date: 20120626
  Transmission Date: 20120928
  Serious: Yes (Life-Threatening, Other)
  Sender: FDA-Public Use
  Company Number: JP-NAPPMUNDI-MAG-2012-0002204

PATIENT
  Sex: Female
  Weight: 49.5 kg

DRUGS (9)
  1. LOXONIN [Concomitant]
     Indication: ARTHRITIS
     Dosage: 180 MG, DAILY
     Route: 048
     Dates: start: 20120301
  2. REBAMIPIDE [Concomitant]
     Indication: GASTRITIS
     Dosage: 300 MG, DAILY
     Route: 048
     Dates: start: 20060301
  3. BUPRENORPHINE [Suspect]
     Indication: MYOFASCIAL PAIN SYNDROME
     Dosage: 5 MCG, Q1H
     Route: 062
     Dates: start: 20120601, end: 20120611
  4. AROFUTO [Concomitant]
     Indication: OSTEOPOROSIS
     Dosage: 40 MG, DAILY
     Route: 048
     Dates: start: 20080901
  5. ALFAROL [Concomitant]
     Indication: OSTEOPOROSIS
     Dosage: .25 MCG, DAILY
     Route: 048
     Dates: start: 20040301
  6. RISEDRONATE SODIUM [Concomitant]
     Indication: OSTEOPOROSIS
     Dosage: 17.5 MG, DAILY
     Route: 048
     Dates: start: 20060301
  7. TIZANIDINE HYDROCHLORIDE [Concomitant]
     Indication: MYOFASCIAL PAIN SYNDROME
     Dosage: 3 MG, DAILY
     Route: 048
     Dates: start: 20080701
  8. HYPEN                              /00613801/ [Concomitant]
     Indication: MYOFASCIAL PAIN SYNDROME
     Dosage: 400 MG, DAILY
     Route: 048
     Dates: start: 20090601
  9. SHAKUYAKUKANZOTO [Concomitant]
     Indication: MYOFASCIAL PAIN SYNDROME
     Dosage: UNK
     Route: 048
     Dates: start: 20080701

REACTIONS (4)
  - HEART RATE DECREASED [None]
  - RESPIRATORY ARREST [None]
  - LOSS OF CONSCIOUSNESS [None]
  - SOMNOLENCE [None]
